FAERS Safety Report 20688221 (Version 6)
Quarter: 2022Q4

REPORT INFORMATION
  Report Type: Spontaneous
  Country: CA (occurrence: CA)
  Receive Date: 20220408
  Receipt Date: 20221111
  Transmission Date: 20230113
  Serious: Yes (Other)
  Sender: FDA-Public Use
  Company Number: CA-CELLTRION INC.-2021CA015275

PATIENT

DRUGS (11)
  1. INFLECTRA [Suspect]
     Active Substance: INFLIXIMAB-DYYB
     Indication: Colitis ulcerative
     Dosage: 450 MG Q 2, 6 WEEKS THEN EVERY 8 WEEKS, WEEK 0 DOSE OF REMICADE AT HOSPITAL
     Route: 042
     Dates: start: 20210513
  2. INFLECTRA [Suspect]
     Active Substance: INFLIXIMAB-DYYB
     Dosage: 450 MG Q 2, 6 WEEKS THEN EVERY 8 WEEKS
     Route: 042
     Dates: start: 20210610
  3. INFLECTRA [Suspect]
     Active Substance: INFLIXIMAB-DYYB
     Dosage: 450 MG Q 2, 6 WEEKS THEN EVERY 8 WEEKS
     Route: 042
     Dates: start: 20210805
  4. INFLECTRA [Suspect]
     Active Substance: INFLIXIMAB-DYYB
     Dosage: 450 MG Q 2, 6 WEEKS THEN EVERY 8 WEEKS
     Route: 042
     Dates: start: 20211005
  5. INFLECTRA [Suspect]
     Active Substance: INFLIXIMAB-DYYB
     Dosage: 450 MG Q 2, 6 WEEKS THEN EVERY 8 WEEKS
     Route: 042
     Dates: start: 20211130
  6. INFLECTRA [Suspect]
     Active Substance: INFLIXIMAB-DYYB
     Dosage: 450 MG Q 2, 6 WEEKS THEN EVERY 8 WEEKS
     Route: 042
     Dates: start: 20220125
  7. INFLECTRA [Suspect]
     Active Substance: INFLIXIMAB-DYYB
     Dosage: 450 MG Q 2, 6 WEEKS THEN EVERY 8 WEEKS
     Route: 042
     Dates: start: 20220324
  8. INFLECTRA [Suspect]
     Active Substance: INFLIXIMAB-DYYB
     Dosage: 450 MG Q 2, 6 WEEKS THEN EVERY 8 WEEKS
     Route: 042
     Dates: start: 20220518
  9. INFLECTRA [Suspect]
     Active Substance: INFLIXIMAB-DYYB
     Dosage: 450 MG, Q 2, 6 WEEKS THEN EVERY 8 WEEKSWEEK 0 DOSE OF REMICADE AT HOSPITAL
     Route: 042
     Dates: start: 20220906
  10. INFLECTRA [Suspect]
     Active Substance: INFLIXIMAB-DYYB
     Dosage: 450 MG, Q 2, 6 WEEKS THEN EVERY 8 WEEKSWEEK 0 DOSE OF REMICADE AT HOSPITAL
     Route: 042
     Dates: start: 20221101
  11. PREDNISONE [Concomitant]
     Active Substance: PREDNISONE
     Dosage: 1 DF
     Route: 065

REACTIONS (5)
  - Condition aggravated [Not Recovered/Not Resolved]
  - Off label use [Unknown]
  - Off label use [Unknown]
  - Intentional product use issue [Unknown]
  - Inappropriate schedule of product administration [Unknown]

NARRATIVE: CASE EVENT DATE: 20211005
